FAERS Safety Report 6963999-5 (Version None)
Quarter: 2010Q3

REPORT INFORMATION
  Report Type: 
  Country: None (occurrence: None)
  Receive Date: 20100902
  Receipt Date: 20100902
  Transmission Date: 20110219
  Serious: Yes (Other)
  Sender: FDA-Public Use
  Company Number: None

PATIENT
  Sex: Male
  Weight: 78.4723 kg

DRUGS (1)
  1. HUMALOG KWIKPEN [Suspect]

REACTIONS (2)
  - DEVICE MALFUNCTION [None]
  - PRODUCT SUBSTITUTION ISSUE [None]
